FAERS Safety Report 17767003 (Version 1)
Quarter: 2020Q2

REPORT INFORMATION
  Report Type: Spontaneous
  Country: US (occurrence: US)
  Receive Date: 20200511
  Receipt Date: 20200511
  Transmission Date: 20200714
  Serious: No
  Sender: FDA-Public Use
  Company Number: US-TEVA-2020-US-1233466

PATIENT
  Age: 69 Year
  Sex: Female

DRUGS (2)
  1. ALBUTEROL INHALER [Concomitant]
     Active Substance: ALBUTEROL
     Route: 065
  2. QVAR REDIHALER [Suspect]
     Active Substance: BECLOMETHASONE DIPROPIONATE
     Indication: ASTHMA
     Dosage: 160 MICROGRAM DAILY; 2 PUFFS BY MOUTH TWICE DAILY
     Route: 048

REACTIONS (6)
  - Wrong technique in product usage process [Unknown]
  - Wheezing [Unknown]
  - Malaise [Unknown]
  - Dyspnoea [Unknown]
  - Therapy interrupted [Unknown]
  - Chest discomfort [Unknown]
